FAERS Safety Report 7451987-4 (Version None)
Quarter: 2011Q2

REPORT INFORMATION
  Report Type: 
  Country: None (occurrence: None)
  Receive Date: 20110425
  Receipt Date: 20110411
  Transmission Date: 20111010
  Serious: Yes (Other)
  Sender: FDA-Public Use
  Company Number: 2011MA003834

PATIENT
  Age: 51 Year
  Sex: Female

DRUGS (4)
  1. CEFAZOLIN [Concomitant]
  2. ONDANSETRON [Suspect]
     Indication: PREMEDICATION
     Dosage: 4 MG;QD;IV
     Route: 042
     Dates: start: 20110330, end: 20110330
  3. MIDAZOLAM HCL [Concomitant]
  4. RANITIDINE [Suspect]
     Indication: PREMEDICATION
     Dosage: 50 MG;QD;IV
     Route: 042
     Dates: start: 20110330, end: 20110330

REACTIONS (3)
  - ASPHYXIA [None]
  - RASH [None]
  - TACHYCARDIA [None]
